FAERS Safety Report 8122348-X (Version None)
Quarter: 2012Q1

REPORT INFORMATION
  Report Type: 
  Country: None (occurrence: None)
  Receive Date: 20120208
  Receipt Date: 20120201
  Transmission Date: 20120608
  Serious: Yes (Hospitalization)
  Sender: FDA-Public Use
  Company Number: US-US-EMD SERONO, INC.-7105720

PATIENT
  Sex: Female
  Weight: 99 kg

DRUGS (4)
  1. INHALER [Concomitant]
  2. REBIF [Suspect]
     Indication: MULTIPLE SCLEROSIS
     Route: 058
     Dates: start: 20111221
  3. REBIF [Suspect]
     Route: 058
     Dates: start: 20120104, end: 20120106
  4. ACETAMINOPHEN [Concomitant]
     Indication: PREMEDICATION

REACTIONS (3)
  - PULMONARY THROMBOSIS [None]
  - PULMONARY EMBOLISM [None]
  - INITIAL INSOMNIA [None]
